FAERS Safety Report 23793797 (Version 1)
Quarter: 2024Q2

REPORT INFORMATION
  Report Type: Spontaneous
  Country: US (occurrence: None)
  Receive Date: 20240426
  Receipt Date: 20240426
  Transmission Date: 20240715
  Serious: No
  Sender: FDA-Public Use
  Company Number: None

PATIENT
  Age: 74 Year
  Sex: Male

DRUGS (1)
  1. LURASIDONE HYDROCHLORIDE [Suspect]
     Active Substance: LURASIDONE HYDROCHLORIDE
     Indication: Bipolar I disorder
     Dosage: FREQUENCY : DAILY;?
     Route: 048
     Dates: start: 20150501, end: 20230520

REACTIONS (2)
  - Hyponatraemia [None]
  - Mental status changes [None]

NARRATIVE: CASE EVENT DATE: 20230520
